FAERS Safety Report 19815867 (Version 1)
Quarter: 2021Q3

REPORT INFORMATION
  Report Type: Report from Study
  Country: US (occurrence: US)
  Receive Date: 20210910
  Receipt Date: 20210910
  Transmission Date: 20211014
  Serious: Yes (Hospitalization, Other)
  Sender: FDA-Public Use
  Company Number: US-TAIHO ONCOLOGY  INC-EU-2021-02736

PATIENT
  Age: 79 Year
  Sex: Male
  Weight: 58.11 kg

DRUGS (33)
  1. DELTASONE [Concomitant]
     Active Substance: PREDNISONE
     Dosage: TAKE 5 MILLIGRAM TABLETS ON SUN/TUE/THURS/SAT
     Route: 048
  2. ALIGN [Concomitant]
     Active Substance: BIFIDOBACTERIUM LONGUM SUBSP. INFANTIS
     Route: 048
  3. TYLENOL [Concomitant]
     Active Substance: ACETAMINOPHEN
     Indication: PAIN
     Dosage: AS NEEDED
     Route: 048
  4. ASPIRIN. [Concomitant]
     Active Substance: ASPIRIN
     Route: 048
  5. BUTALBITAL?ACETAMINOPHEN?CAFFEINE [Concomitant]
     Active Substance: ACETAMINOPHEN\BUTALBITAL\CAFFEINE
     Indication: HEADACHE
     Dosage: 50?325?40 MG, AS NEEDED
  6. DIPHENHYDRAMINE. [Concomitant]
     Active Substance: DIPHENHYDRAMINE
     Indication: HYPERSENSITIVITY
  7. JALYN [Concomitant]
     Active Substance: DUTASTERIDE\TAMSULOSIN HYDROCHLORIDE
     Dosage: 0.5?0.4 MG (AT BEDTIME)
     Route: 048
  8. MELATONIN [Concomitant]
     Active Substance: MELATONIN
     Dosage: AS NEEDED
     Route: 048
  9. ZOFRAN [Concomitant]
     Active Substance: ONDANSETRON HYDROCHLORIDE
     Indication: VOMITING
  10. COMPAZINE [Concomitant]
     Active Substance: PROCHLORPERAZINE MALEATE
     Indication: VOMITING
  11. LIPITOR [Concomitant]
     Active Substance: ATORVASTATIN CALCIUM
     Dosage: AT BEDTIME
     Route: 048
  12. ZITHROMAX [Concomitant]
     Active Substance: AZITHROMYCIN DIHYDRATE
     Dosage: ON DAYS 2?5
  13. OPIUM. [Concomitant]
     Active Substance: OPIUM
     Indication: DIARRHOEA
     Dosage: 10 MG/ML (1%) ORAL TINCTURE DEODORIZED
     Route: 048
  14. POLYETHYLENE GLYCOL 3350. [Concomitant]
     Active Substance: POLYETHYLENE GLYCOL 3350
     Indication: CONSTIPATION
     Dosage: DISSOLVE 17 GRAM AS DIRECTED
     Route: 048
  15. TYLENOL [Concomitant]
     Active Substance: ACETAMINOPHEN
     Indication: PYREXIA
  16. OXYGEN. [Concomitant]
     Active Substance: OXYGEN
     Dosage: INHALE 3L/MIN
  17. COMPAZINE [Concomitant]
     Active Substance: PROCHLORPERAZINE MALEATE
     Indication: NAUSEA
     Route: 048
  18. NEULASTA [Suspect]
     Active Substance: PEGFILGRASTIM
     Indication: PRODUCT USED FOR UNKNOWN INDICATION
     Dosage: ON DAY 14 (DOSE AND FREQUENCY NOT PROVIDED)
  19. DOCUSATE SODIUM. [Concomitant]
     Active Substance: DOCUSATE SODIUM
     Indication: CONSTIPATION
     Dosage: AS NEEDED
     Route: 048
  20. DIPHENHYDRAMINE. [Concomitant]
     Active Substance: DIPHENHYDRAMINE
     Indication: PRURITUS
     Route: 048
  21. DIPHENHYDRAMINE. [Concomitant]
     Active Substance: DIPHENHYDRAMINE
     Indication: URTICARIA
  22. NEXIUM [Concomitant]
     Active Substance: ESOMEPRAZOLE MAGNESIUM
     Dosage: BEFORE BREAKFAST
     Route: 048
  23. MERREM [Concomitant]
     Active Substance: MEROPENEM
  24. ZOFRAN [Concomitant]
     Active Substance: ONDANSETRON HYDROCHLORIDE
     Indication: NAUSEA
     Route: 048
  25. LONSURF [Suspect]
     Active Substance: TIPIRACIL HYDROCHLORIDE\TRIFLURIDINE
     Indication: PRODUCT USED FOR UNKNOWN INDICATION
     Dosage: CYCLE UNKNOWN
     Route: 048
     Dates: start: 20210816
  26. ASTELIN [Concomitant]
     Active Substance: AZELASTINE HYDROCHLORIDE
     Dosage: 2 SPRAYS IN TO EACH NOSTRILS
     Route: 045
  27. ZITHROMAX [Concomitant]
     Active Substance: AZITHROMYCIN DIHYDRATE
     Dosage: ON DAY 1
  28. VITAMIN D3 [Concomitant]
     Active Substance: CHOLECALCIFEROL
     Route: 048
  29. ZINC GLUCONATE [Concomitant]
     Active Substance: ZINC GLUCONATE
     Route: 048
  30. VITAMIN C [Concomitant]
     Active Substance: ASCORBIC ACID
     Route: 048
  31. VALIUM [Concomitant]
     Active Substance: DIAZEPAM
     Indication: ANXIETY
     Dosage: AS NEEDED
     Route: 048
  32. FLUTICASONE PROPIONATE. [Concomitant]
     Active Substance: FLUTICASONE PROPIONATE
     Dosage: 1 SPRAY INTO EACH NOSTRIL
     Route: 045
  33. TOPROL XL [Concomitant]
     Active Substance: METOPROLOL SUCCINATE
     Route: 048

REACTIONS (10)
  - Haemoglobin decreased [Unknown]
  - Hydronephrosis [Unknown]
  - Dysuria [Unknown]
  - White blood cell count decreased [Unknown]
  - Diarrhoea [Unknown]
  - Sepsis [Unknown]
  - Urinary tract infection [Unknown]
  - Cough [Unknown]
  - Incorrect dose administered [Unknown]
  - Bladder outlet obstruction [Unknown]

NARRATIVE: CASE EVENT DATE: 20210830
